FAERS Safety Report 18919493 (Version 1)
Quarter: 2021Q1

REPORT INFORMATION
  Report Type: Spontaneous
  Country: US (occurrence: US)
  Receive Date: 20210221
  Receipt Date: 20210221
  Transmission Date: 20210420
  Serious: No
  Sender: FDA-Public Use
  Company Number: US-GLAXOSMITHKLINE-USCH2021GSK006443

PATIENT
  Sex: Female
  Weight: 90.72 kg

DRUGS (3)
  1. ADVIL [Suspect]
     Active Substance: IBUPROFEN
     Indication: FACIAL PAIN
  2. ADVIL [Suspect]
     Active Substance: IBUPROFEN
     Indication: PAIN IN JAW
     Dosage: UNK
  3. ADVIL [Suspect]
     Active Substance: IBUPROFEN
     Indication: EAR PAIN

REACTIONS (1)
  - Therapeutic product effect incomplete [Unknown]
